FAERS Safety Report 10042865 (Version 3)
Quarter: 2014Q2

REPORT INFORMATION
  Report Type: Spontaneous
  Country: BR (occurrence: BR)
  Receive Date: 20140327
  Receipt Date: 20140515
  Transmission Date: 20141212
  Serious: No
  Sender: FDA-Public Use
  Company Number: PHHY2014BR001384

PATIENT
  Age: 35 Year
  Sex: Female
  Weight: 59 kg

DRUGS (2)
  1. GILENYA [Suspect]
     Indication: MULTIPLE SCLEROSIS
     Dosage: 0.5 MG, QD
     Route: 048
     Dates: start: 20131220
  2. RIVOTRIL [Concomitant]
     Indication: INSOMNIA
     Dosage: 7 DRP, QD
     Route: 048

REACTIONS (7)
  - Blood pressure decreased [Recovering/Resolving]
  - Palpitations [Unknown]
  - Hyperhidrosis [Unknown]
  - Exercise tolerance decreased [Not Recovered/Not Resolved]
  - Fatigue [Not Recovered/Not Resolved]
  - Heart rate decreased [Recovering/Resolving]
  - Dizziness [Unknown]
